FAERS Safety Report 14345694 (Version 1)
Quarter: 2018Q1

REPORT INFORMATION
  Report Type: Spontaneous
  Country: US (occurrence: US)
  Receive Date: 20180103
  Receipt Date: 20180103
  Transmission Date: 20180509
  Serious: No
  Sender: FDA-Public Use
  Company Number: US-TARO-2017TAR00565

PATIENT
  Sex: Female

DRUGS (2)
  1. PROCTOSOL-HC [Suspect]
     Active Substance: HYDROCORTISONE
     Indication: HAEMORRHOIDS
     Dosage: UNK
     Route: 054
  2. PROCTOSOL-HC [Suspect]
     Active Substance: HYDROCORTISONE
     Indication: MUSCLE SPASMS
     Dosage: UNK
     Route: 061

REACTIONS (4)
  - Haemorrhage [Unknown]
  - Wrong technique in product usage process [Unknown]
  - Off label use [Unknown]
  - Eating disorder [Unknown]
